FAERS Safety Report 7406554-5 (Version None)
Quarter: 2011Q2

REPORT INFORMATION
  Report Type: 
  Country: None (occurrence: None)
  Receive Date: 20110411
  Receipt Date: 20110331
  Transmission Date: 20111010
  Serious: Yes (Hospitalization, Other)
  Sender: FDA-Public Use
  Company Number: US-ASTRAZENECA-2011SE18257

PATIENT
  Age: 82 Year
  Sex: Male
  Weight: 79.4 kg

DRUGS (1)
  1. CRESTOR [Suspect]
     Route: 048

REACTIONS (6)
  - DIZZINESS [None]
  - PNEUMONIA [None]
  - ANAL CANCER [None]
  - FALL [None]
  - ASTHENIA [None]
  - WEIGHT DECREASED [None]
